FAERS Safety Report 8879630 (Version 2)
Quarter: 2012Q4

REPORT INFORMATION
  Report Type: 
  Country: PT (occurrence: PT)
  Receive Date: 20121101
  Receipt Date: 20121105
  Transmission Date: 20130627
  Serious: Yes (Other)
  Sender: FDA-Public Use
  Company Number: PT-JNJFOC-20121013486

PATIENT
  Age: 8 Year
  Sex: Male

DRUGS (5)
  1. PARACETAMOL [Suspect]
     Indication: HEADACHE
     Route: 048
  2. PARACETAMOL [Suspect]
     Indication: HEADACHE
     Route: 048
  3. PARACETAMOL [Suspect]
     Indication: PRODUCT USED FOR UNKNOWN INDICATION
     Route: 048
  4. PARACETAMOL [Suspect]
     Indication: PRODUCT USED FOR UNKNOWN INDICATION
     Route: 048
  5. PARACETAMOL [Suspect]
     Indication: POSTOPERATIVE CARE
     Route: 042

REACTIONS (2)
  - Anaphylactic reaction [Unknown]
  - Fatigue [Recovered/Resolved]
